FAERS Safety Report 9216833 (Version 1)
Quarter: 2013Q2

REPORT INFORMATION
  Report Type: Spontaneous
  Country: US (occurrence: US)
  Receive Date: 20130408
  Receipt Date: 20130408
  Transmission Date: 20140414
  Serious: No
  Sender: FDA-Public Use
  Company Number: US-BAYER-2013-043761

PATIENT
  Sex: Female

DRUGS (1)
  1. ALEVE GELCAPS [Suspect]
     Indication: ARTHRITIS
     Dosage: UNK,TAKES 2- 4 EVERYDAY FOR PAST 9 MONTHS
     Route: 048
     Dates: start: 2012

REACTIONS (2)
  - Overdose [None]
  - Incorrect drug administration duration [None]
